FAERS Safety Report 8564956-8 (Version None)
Quarter: 2012Q3

REPORT INFORMATION
  Report Type: 
  Country: None (occurrence: None)
  Receive Date: 20120803
  Receipt Date: 20120725
  Transmission Date: 20120928
  Serious: Yes (Life-Threatening, Hospitalization, Disabling, Other)
  Sender: FDA-Public Use
  Company Number: GB-NAPPMUNDI-GBR-2012-0011109

PATIENT
  Age: 90 Year
  Sex: Female

DRUGS (6)
  1. CLONAZEPAM [Suspect]
     Indication: ANALGESIC THERAPY
     Dosage: 125 UG/ML, DAILY
     Route: 048
     Dates: start: 20120630, end: 20120709
  2. ONDANSETRON [Suspect]
     Indication: NAUSEA
     Dosage: 4 MG, BID
     Route: 048
     Dates: start: 20120628
  3. MORPHINE SUL HYT [Suspect]
     Dosage: 5 MG,
     Route: 048
     Dates: start: 20120619, end: 20120620
  4. METOCLOPRAMIDE [Suspect]
     Indication: NAUSEA
     Dosage: 10 MG, QID
     Route: 048
     Dates: start: 20120628, end: 20120710
  5. MORPHINE SUL HYT [Suspect]
     Dosage: 5 MG,
     Route: 048
     Dates: start: 20120628, end: 20120628
  6. OXYCODONE HCL [Suspect]
     Indication: ANALGESIC THERAPY
     Dosage: UNK
     Route: 048
     Dates: start: 20120628, end: 20120705

REACTIONS (6)
  - STEVENS-JOHNSON SYNDROME [None]
  - BLISTER [None]
  - SKIN EXFOLIATION [None]
  - ERYTHEMA [None]
  - RASH [None]
  - EXCORIATION [None]
